FAERS Safety Report 9405608 (Version 1)
Quarter: 2013Q3

REPORT INFORMATION
  Report Type: Spontaneous
  Country: US (occurrence: US)
  Receive Date: 20130717
  Receipt Date: 20130717
  Transmission Date: 20140515
  Serious: Yes (Other)
  Sender: FDA-Public Use
  Company Number: US-BAYER-2013-085279

PATIENT
  Age: 65 Year
  Sex: Female
  Weight: 56.69 kg

DRUGS (3)
  1. BAYER ASPIRIN REGIMEN ADULT LOW STRENGTH [Suspect]
     Indication: MYELODYSPLASTIC SYNDROME
     Dosage: 81 MG, DAILY
     Route: 048
  2. LEVOTHYROXINE [Suspect]
  3. SYNTHROID [Concomitant]

REACTIONS (4)
  - Haemorrhage [Recovered/Resolved]
  - Hypersensitivity [Recovered/Resolved]
  - Pruritus [Recovered/Resolved]
  - Off label use [None]
